FAERS Safety Report 6896982-9 (Version None)
Quarter: 2010Q3

REPORT INFORMATION
  Report Type: 
  Country: None (occurrence: None)
  Receive Date: 20100802
  Receipt Date: 20070305
  Transmission Date: 20110219
  Serious: No
  Sender: FDA-Public Use
  Company Number: US-PFIZER INC-2007018547

PATIENT
  Sex: Female
  Weight: 59.9 kg

DRUGS (7)
  1. LYRICA [Suspect]
     Indication: NEUROPATHY PERIPHERAL
     Dates: start: 20070129
  2. COZAAR [Concomitant]
  3. COREG [Concomitant]
  4. ZETIA [Concomitant]
  5. POTASSIUM [Concomitant]
  6. WARFARIN SODIUM [Concomitant]
  7. FUROSEMIDE [Concomitant]

REACTIONS (1)
  - WEIGHT INCREASED [None]
